FAERS Safety Report 18606636 (Version 1)
Quarter: 2020Q4

REPORT INFORMATION
  Report Type: Spontaneous
  Country: US (occurrence: US)
  Receive Date: 20201211
  Receipt Date: 20201211
  Transmission Date: 20210114
  Serious: Yes (Hospitalization)
  Sender: FDA-Public Use
  Company Number: US-MYLANLABS-2020M1101806

PATIENT
  Age: 51 Year
  Sex: Female

DRUGS (5)
  1. VALPROIC ACID. [Suspect]
     Active Substance: VALPROIC ACID
     Dosage: 240 MILLIGRAM, Q6H 2 DOSES ON DAY 2
     Route: 042
  2. VALPROIC ACID. [Suspect]
     Active Substance: VALPROIC ACID
     Indication: MYOCLONUS
     Dosage: 1470 MILLIGRAM ON DAY-1; LOADING DOSE OF 20 MG/KG
     Route: 042
  3. VALPROIC ACID. [Suspect]
     Active Substance: VALPROIC ACID
     Dosage: 500 MILLIGRAM ADMINISTERED IN THE EVENING OF DAY 2 CONSIDERING HER CLINICAL STATUS
     Route: 042
  4. VALPROIC ACID. [Suspect]
     Active Substance: VALPROIC ACID
     Dosage: 500 MILLIGRAM, Q8H FROM DAY-2 TO DAY 4
     Route: 042
  5. VALPROIC ACID. [Suspect]
     Active Substance: VALPROIC ACID
     Dosage: 750 MILLIGRAM, Q8H UNTIL DAY 6
     Route: 042

REACTIONS (1)
  - Drug ineffective [Unknown]
